FAERS Safety Report 8188392-1 (Version None)
Quarter: 2012Q1

REPORT INFORMATION
  Report Type: 
  Country: None (occurrence: None)
  Receive Date: 20120306
  Receipt Date: 20120222
  Transmission Date: 20120608
  Serious: Yes (Hospitalization)
  Sender: FDA-Public Use
  Company Number: PHEH2012US004637

PATIENT
  Sex: Male

DRUGS (2)
  1. ZOMETA [Suspect]
     Dosage: 4 MG, UNK
     Route: 042
     Dates: start: 20110801
  2. ZOMETA [Suspect]
     Dosage: 4 MG, UNK
     Route: 042
     Dates: start: 20110701

REACTIONS (9)
  - DECREASED APPETITE [None]
  - AGEUSIA [None]
  - SPINAL DISORDER [None]
  - ABASIA [None]
  - BACK PAIN [None]
  - MOVEMENT DISORDER [None]
  - BONE PAIN [None]
  - ASTHENIA [None]
  - FEELING ABNORMAL [None]
